FAERS Safety Report 8449320-4 (Version None)
Quarter: 2012Q2

REPORT INFORMATION
  Report Type: 
  Country: None (occurrence: None)
  Receive Date: 20120619
  Receipt Date: 20120604
  Transmission Date: 20120825
  Serious: Yes (Other)
  Sender: FDA-Public Use
  Company Number: CHPA2012US011942

PATIENT
  Sex: Female

DRUGS (3)
  1. PHENYLEPHRINE HCL [Suspect]
     Indication: NASAL CONGESTION
     Dosage: 1 SPRAY, 4 TIMES A DAY
     Route: 045
     Dates: start: 19750101
  2. BENADRYL ^ACHE^ [Concomitant]
  3. AFRIN                              /00070002/ [Suspect]
     Dosage: UNK, UNK

REACTIONS (8)
  - FACIAL BONES FRACTURE [None]
  - INCORRECT DRUG ADMINISTRATION DURATION [None]
  - SINUS DISORDER [None]
  - EPISTAXIS [None]
  - DISEASE RECURRENCE [None]
  - CHONDROPATHY [None]
  - DRUG DEPENDENCE [None]
  - BLOOD PRESSURE INCREASED [None]
